FAERS Safety Report 26202511 (Version 1)
Quarter: 2025Q4

REPORT INFORMATION
  Report Type: Spontaneous
  Country: EU (occurrence: EU)
  Receive Date: 20251226
  Receipt Date: 20251226
  Transmission Date: 20260117
  Serious: Yes (Hospitalization, Other)
  Sender: AUROBINDO
  Company Number: EU-AFSSAPS-TS2025001296

PATIENT
  Age: 79 Year
  Sex: Male
  Weight: 94 kg

DRUGS (5)
  1. INDAPAMIDE [Suspect]
     Active Substance: INDAPAMIDE
     Indication: Hypertension
     Dosage: 1.5 MILLIGRAM, ONCE A DAY
     Route: 061
     Dates: end: 20251008
  2. FENOFIBRATE [Suspect]
     Active Substance: FENOFIBRATE
     Indication: Dyslipidaemia
     Dosage: 200 MILLIGRAM, ONCE A DAY
     Route: 061
     Dates: end: 20251008
  3. GLIMEPIRIDE [Suspect]
     Active Substance: GLIMEPIRIDE
     Indication: Type 2 diabetes mellitus
     Dosage: 3 MILLIGRAM, ONCE A DAY
     Route: 061
     Dates: end: 20250926
  4. LANSOPRAZOLE [Suspect]
     Active Substance: LANSOPRAZOLE
     Indication: Type 2 diabetes mellitus
     Dosage: 3 MILLIGRAM, ONCE A DAY
     Route: 061
     Dates: end: 20250926
  5. XARELTO [Suspect]
     Active Substance: RIVAROXABAN
     Indication: Atrial fibrillation
     Dosage: 20 MILLIGRAM, ONCE A DAY
     Route: 061
     Dates: start: 202506, end: 20250926

REACTIONS (2)
  - Cholangitis [Not Recovered/Not Resolved]
  - Hepatic cirrhosis [Not Recovered/Not Resolved]

NARRATIVE: CASE EVENT DATE: 20250701
